FAERS Safety Report 4620620-9 (Version None)
Quarter: 2005Q1

REPORT INFORMATION
  Report Type: 
  Country: None (occurrence: None)
  Receive Date: 20050324
  Receipt Date: 20050311
  Transmission Date: 20050727
  Serious: Yes (Hospitalization, Other)
  Sender: FDA-Public Use
  Company Number: 2005040103

PATIENT
  Age: 72 Year
  Sex: Female
  Weight: 49.8957 kg

DRUGS (2)
  1. TRIAZOLAM [Suspect]
     Indication: SLEEP DISORDER
     Dosage: 025 MG (0.25 MG, 1 IN 1 D), ORAL
     Route: 048
     Dates: start: 20050228
  2. TRIAZOLAM [Suspect]
     Indication: SLEEP DISORDER
     Dosage: ORAL
     Route: 048

REACTIONS (5)
  - BLOOD PRESSURE INCREASED [None]
  - DRUG INEFFECTIVE [None]
  - HEART RATE DECREASED [None]
  - PHARMACEUTICAL PRODUCT COMPLAINT [None]
  - THYROIDECTOMY [None]
